FAERS Safety Report 10906221 (Version 7)
Quarter: 2016Q1

REPORT INFORMATION
  Report Type: Report from Study
  Country: US (occurrence: US)
  Receive Date: 20150311
  Receipt Date: 20160129
  Transmission Date: 20160525
  Serious: Yes (Death, Hospitalization)
  Sender: FDA-Public Use
  Company Number: US-ACTELION-A-NJ2015-114032

PATIENT
  Age: 74 Year
  Sex: Male

DRUGS (2)
  1. TRACLEER [Suspect]
     Active Substance: BOSENTAN
     Indication: PULMONARY ARTERIAL HYPERTENSION
     Dosage: 125 MG, UNK
     Route: 048
     Dates: start: 2004, end: 20151203
  2. TYVASO [Concomitant]
     Active Substance: TREPROSTINIL

REACTIONS (7)
  - Disease progression [Fatal]
  - Cor pulmonale [Unknown]
  - Dyspnoea [Unknown]
  - Nerve injury [Recovering/Resolving]
  - Pulmonary arterial hypertension [Fatal]
  - Speech disorder [Unknown]
  - Right ventricular failure [Fatal]

NARRATIVE: CASE EVENT DATE: 20150224
